FAERS Safety Report 7745329-4 (Version None)
Quarter: 2011Q3

REPORT INFORMATION
  Report Type: 
  Country: None (occurrence: None)
  Receive Date: 20110825
  Receipt Date: 20110603
  Transmission Date: 20111222
  Serious: No
  Sender: FDA-Public Use
  Company Number: 329823

PATIENT
  Sex: Male
  Weight: 93 kg

DRUGS (4)
  1. LANTUS [Suspect]
     Dosage: 40, SUBCUTANEOUS
     Dates: start: 20110527
  2. HUMALOG [Suspect]
     Dosage: 6 U, SUBCUTANEOUS; 8 U, SUBCUTANEOUS
     Route: 058
  3. METFORMIN HCL [Suspect]
     Dosage: 15000 MG, QD (500 MG, QD (500 AM, 1000PM) ORAL
     Route: 048
  4. VICTOZA [Suspect]
     Indication: PRODUCT USED FOR UNKNOWN INDICATION
     Dosage: SUBCUTANEOUS
     Route: 058

REACTIONS (2)
  - WEIGHT DECREASED [None]
  - BLOOD GLUCOSE INCREASED [None]
